FAERS Safety Report 14713123 (Version 1)
Quarter: 2018Q2

REPORT INFORMATION
  Report Type: Spontaneous
  Country: US (occurrence: US)
  Receive Date: 20180404
  Receipt Date: 20180404
  Transmission Date: 20180711
  Serious: No
  Sender: FDA-Public Use
  Company Number: US-PFIZER INC-2018133487

PATIENT
  Sex: Female

DRUGS (2)
  1. VIBRAMYCIN [Suspect]
     Active Substance: DOXYCYCLINE
     Indication: BLEPHARITIS
     Dosage: 100 MG, 2X/DAY
  2. VIBRAMYCIN [Suspect]
     Active Substance: DOXYCYCLINE
     Indication: STAPHYLOCOCCAL INFECTION

REACTIONS (2)
  - Skin hyperpigmentation [Not Recovered/Not Resolved]
  - Photosensitivity reaction [Not Recovered/Not Resolved]

NARRATIVE: CASE EVENT DATE: 2018
